FAERS Safety Report 4268971-4 (Version None)
Quarter: 2004Q1

REPORT INFORMATION
  Report Type: 
  Country: None (occurrence: None)
  Receive Date: 20040108
  Receipt Date: 20040105
  Transmission Date: 20041129
  Serious: Yes (Hospitalization)
  Sender: FDA-Public Use
  Company Number: USA-2003-0011080

PATIENT
  Age: 64 Year
  Sex: Female

DRUGS (6)
  1. MS CONTIN [Suspect]
     Indication: PAIN
     Dosage: 100 MG, BID, ORAL
     Route: 048
  2. MS CONTIN [Concomitant]
  3. SINEMET [Concomitant]
  4. NEURONTIN [Concomitant]
  5. AMBIEN [Concomitant]
  6. TAMOXIFEN CITRATE [Concomitant]

REACTIONS (7)
  - ACCIDENTAL OVERDOSE [None]
  - FALL [None]
  - GAIT DISTURBANCE [None]
  - HIP FRACTURE [None]
  - MEDICATION ERROR [None]
  - PYREXIA [None]
  - SOMNOLENCE [None]
